FAERS Safety Report 7592575-9 (Version None)
Quarter: 2011Q3

REPORT INFORMATION
  Report Type: 
  Country: None (occurrence: None)
  Receive Date: 20110706
  Receipt Date: 20110518
  Transmission Date: 20111222
  Serious: No
  Sender: FDA-Public Use
  Company Number: US-TYCO HEALTHCARE/MALLINCKRODT-T201101061

PATIENT

DRUGS (1)
  1. OXYCODONE/ACETAMINOPHEN [Suspect]
     Indication: SPINAL CORD NEOPLASM
     Dosage: 5/500 MG, 1 CAPSULE  TID
     Route: 048
     Dates: start: 20110502

REACTIONS (4)
  - HEADACHE [None]
  - HYPERSENSITIVITY [None]
  - PALPITATIONS [None]
  - DYSPNOEA [None]
